FAERS Safety Report 21927287 (Version 1)
Quarter: 2023Q1

REPORT INFORMATION
  Report Type: Spontaneous
  Country: US (occurrence: None)
  Receive Date: 20230129
  Receipt Date: 20230129
  Transmission Date: 20230418
  Serious: Yes (Disabling)
  Sender: FDA-Public Use
  Company Number: None

PATIENT
  Sex: 0

DRUGS (1)
  1. ESCITALOPRAM [Suspect]
     Active Substance: ESCITALOPRAM OXALATE
     Indication: Drug therapy
     Dates: start: 20230109, end: 20230128

REACTIONS (18)
  - Diarrhoea [None]
  - Haematochezia [None]
  - Dyspnoea [None]
  - Cough [None]
  - Decreased appetite [None]
  - Anxiety [None]
  - Somnambulism [None]
  - Ocular hyperaemia [None]
  - Hyperhidrosis [None]
  - Migraine [None]
  - Fatigue [None]
  - Depression [None]
  - Headache [None]
  - Depressed level of consciousness [None]
  - Impaired work ability [None]
  - Skin disorder [None]
  - Obsessive-compulsive disorder [None]
  - Agoraphobia [None]

NARRATIVE: CASE EVENT DATE: 20230115
